FAERS Safety Report 13091877 (Version 2)
Quarter: 2017Q1

REPORT INFORMATION
  Report Type: Spontaneous
  Country: IT (occurrence: IT)
  Receive Date: 20170106
  Receipt Date: 20170106
  Transmission Date: 20170428
  Serious: Yes (Other)
  Sender: FDA-Public Use
  Company Number: IT-TEVA-726426ACC

PATIENT
  Age: 26 Year
  Sex: Female

DRUGS (13)
  1. RIVOTRIL [Suspect]
     Active Substance: CLONAZEPAM
     Indication: DRUG ABUSE
  2. SIMVASTATIN. [Suspect]
     Active Substance: SIMVASTATIN
     Indication: PRODUCT USED FOR UNKNOWN INDICATION
     Route: 048
     Dates: start: 20161107, end: 20161107
  3. IGROTON - AMDIPHARM LTD? [Suspect]
     Active Substance: CHLORTHALIDONE
     Indication: PRODUCT USED FOR UNKNOWN INDICATION
     Route: 048
     Dates: start: 20161107, end: 20161107
  4. IGROTON - AMDIPHARM LTD? [Suspect]
     Active Substance: CHLORTHALIDONE
     Indication: DRUG ABUSE
  5. DEURSIL [Suspect]
     Active Substance: URSODIOL
     Indication: DRUG ABUSE
  6. TORVAST - PFIZER LIMITED [Suspect]
     Active Substance: ATORVASTATIN
     Indication: DRUG ABUSE
  7. TORVAST - PFIZER LIMITED [Suspect]
     Active Substance: ATORVASTATIN
     Indication: PRODUCT USED FOR UNKNOWN INDICATION
     Route: 048
     Dates: start: 20161107, end: 20161107
  8. ASPIRINA - BAYER S.P.A. [Suspect]
     Active Substance: ASPIRIN
     Indication: PRODUCT USED FOR UNKNOWN INDICATION
  9. RIVOTRIL [Suspect]
     Active Substance: CLONAZEPAM
     Indication: PRODUCT USED FOR UNKNOWN INDICATION
     Route: 048
     Dates: start: 20161107, end: 20161107
  10. ENTACT - H. LUNDBECK A/S [Suspect]
     Active Substance: ESCITALOPRAM OXALATE
     Indication: PRODUCT USED FOR UNKNOWN INDICATION
     Route: 048
     Dates: start: 20161107, end: 20161107
  11. SIMVASTATIN. [Suspect]
     Active Substance: SIMVASTATIN
     Indication: DRUG ABUSE
     Route: 048
     Dates: start: 20161107, end: 20161107
  12. DEURSIL [Suspect]
     Active Substance: URSODIOL
     Indication: PRODUCT USED FOR UNKNOWN INDICATION
     Route: 048
     Dates: start: 20161107, end: 20161107
  13. ENTACT - H. LUNDBECK A/S [Suspect]
     Active Substance: ESCITALOPRAM OXALATE
     Indication: DRUG ABUSE

REACTIONS (3)
  - Drug abuse [Recovering/Resolving]
  - Sopor [Recovering/Resolving]
  - Poisoning [Recovering/Resolving]

NARRATIVE: CASE EVENT DATE: 20161107
